FAERS Safety Report 20480383 (Version 1)
Quarter: 2022Q1

REPORT INFORMATION
  Report Type: Spontaneous
  Country: DE (occurrence: DE)
  Receive Date: 20220216
  Receipt Date: 20220216
  Transmission Date: 20220424
  Serious: Yes (Other)
  Sender: FDA-Public Use
  Company Number: DE-EMBRYOTOX-202013291

PATIENT
  Sex: Female
  Weight: 80 kg

DRUGS (7)
  1. MIRTAZAPINE [Suspect]
     Active Substance: MIRTAZAPINE
     Indication: Depression
     Dosage: 45 (MG/D), 0. - 40.3. GESTATIONAL WEEK
     Route: 048
     Dates: start: 20201018, end: 20210728
  2. QUETIAPINE FUMARATE [Suspect]
     Active Substance: QUETIAPINE FUMARATE
     Indication: Borderline personality disorder
     Dosage: 100 (MG/D), (0- 40.3. GESTATIONAL WEEK
     Route: 048
     Dates: start: 20201018, end: 20210728
  3. LEVOTHYROXINE SODIUM [Concomitant]
     Active Substance: LEVOTHYROXINE SODIUM
     Indication: Hypothyroidism
     Dosage: 75 (?G/D), (0- 40.3. GESTATIONAL WEEK)
     Route: 048
     Dates: start: 20201018, end: 20210728
  4. PROTHIPENDYL HYDROCHLORIDE [Concomitant]
     Active Substance: PROTHIPENDYL HYDROCHLORIDE
     Indication: Sleep disorder
     Dosage: 40 (MG/D), (0- 6.4. GESTATIONAL WEEK )
     Route: 048
     Dates: start: 20201018, end: 20201203
  5. NEUROCIL [LEVOMEPROMAZINE MALEATE] [Concomitant]
     Indication: Anxiety disorder
     Dosage: 25 (MG/D), (0- 6.4. GESTATIONAL WEEK)
     Route: 048
     Dates: start: 20201018, end: 20201203
  6. PROTAPHANE [Concomitant]
     Active Substance: INSULIN HUMAN
     Indication: Gestational diabetes
     Dosage: 6 (IE/D (0-0-6)), (26- 40.3. GESTATIONAL WEEK)
     Route: 058
  7. BUTYLSCOPOLAMINE BROMIDE [Concomitant]
     Active Substance: BUTYLSCOPOLAMINE BROMIDE
     Indication: Urinary tract obstruction
     Dosage: 22- 26. GESTATIONAL WEEK
     Route: 065

REACTIONS (2)
  - Gestational diabetes [Recovered/Resolved]
  - Exposure during pregnancy [Unknown]
